FAERS Safety Report 5520133-6 (Version None)
Quarter: 2007Q4

REPORT INFORMATION
  Report Type: 
  Country: None (occurrence: None)
  Receive Date: 20071116
  Receipt Date: 20071109
  Transmission Date: 20080405
  Serious: Yes (Other)
  Sender: FDA-Public Use
  Company Number: US-SHR-US-2007-017700

PATIENT
  Age: 47 Year
  Sex: Male

DRUGS (8)
  1. BETASERON [Suspect]
     Indication: SECONDARY PROGRESSIVE MULTIPLE SCLEROSIS
     Dosage: 8 MIU, EVERY 2D
     Route: 058
     Dates: start: 19970101
  2. PREDNISONE TAB [Suspect]
     Dosage: 40 MG/D, 1X/6 WEEKS
     Route: 048
  3. PREDNISONE TAB [Suspect]
     Dosage: 30 MG/D, 1X/6 WEEKS
     Route: 048
  4. PREDNISONE TAB [Suspect]
     Dosage: 20 MG/D, 1X/6 WEEKS
  5. PREDNISONE TAB [Suspect]
     Dosage: 10 MG/D, 1X/6 WEEKS
     Route: 048
  6. CORTICOSTEROIDS FOR SYSTEMIC USE [Suspect]
     Dosage: UNK, UNK
     Route: 042
     Dates: start: 20070401, end: 20070501
  7. MULTI-VITAMINS [Concomitant]
  8. CALCIUM [Concomitant]

REACTIONS (8)
  - BLOOD PRESSURE DECREASED [None]
  - DIARRHOEA [None]
  - FAECAL INCONTINENCE [None]
  - LOSS OF CONSCIOUSNESS [None]
  - NAUSEA [None]
  - UNEVALUABLE EVENT [None]
  - URINARY INCONTINENCE [None]
  - VOMITING [None]
